FAERS Safety Report 11743737 (Version 3)
Quarter: 2015Q4

REPORT INFORMATION
  Report Type: Spontaneous
  Country: JP (occurrence: JP)
  Receive Date: 20151116
  Receipt Date: 20151224
  Transmission Date: 20160304
  Serious: Yes (Hospitalization, Other)
  Sender: FDA-Public Use
  Company Number: JP-GILEAD-2015-0181029

PATIENT
  Age: 79 Year
  Sex: Female
  Weight: 53 kg

DRUGS (16)
  1. HARVONI [Suspect]
     Active Substance: LEDIPASVIR\SOFOSBUVIR
     Indication: HEPATIC CIRRHOSIS
     Dosage: 1 DF, UNK
     Route: 048
     Dates: start: 20151019, end: 20151027
  2. DOGMATYL [Concomitant]
     Active Substance: SULPIRIDE
     Dosage: 50 MG, BID AFTER BREAKFAST AND DINNER
     Route: 048
  3. ONON [Concomitant]
     Active Substance: PRANLUKAST
     Dosage: 25 MG, BID AFTER BREAKFAST AND DINNER
     Route: 048
  4. RABEPRAZOLE NA [Concomitant]
     Active Substance: RABEPRAZOLE SODIUM
     Dosage: 10 MG, QD AFTER BREAKFAST
     Route: 048
  5. MAGMITT [Concomitant]
     Active Substance: MAGNESIUM OXIDE
     Dosage: 330 MG, BID AFTER BREAKFAST AND DINNER
     Route: 048
  6. URSO [Concomitant]
     Active Substance: URSODIOL
     Dosage: 100 MG, TID AFTER EACH MEAL
     Route: 048
  7. JANUVIA [Concomitant]
     Active Substance: SITAGLIPTIN PHOSPHATE
     Dosage: 25 MG, QD AFTER BREAKFAST
     Route: 048
  8. EVISTA [Concomitant]
     Active Substance: RALOXIFENE HYDROCHLORIDE
     Dosage: 60 MG, QD AFTER DINNER
     Route: 048
  9. HARVONI [Suspect]
     Active Substance: LEDIPASVIR\SOFOSBUVIR
     Dosage: 1 DF, UNK
     Route: 048
     Dates: start: 20151029
  10. NABOAL                             /00372302/ [Concomitant]
     Dosage: 2 DF, UNK
     Route: 048
     Dates: start: 20151019, end: 20151023
  11. NEUROTROPIN                        /00398601/ [Concomitant]
     Active Substance: CYANOCOBALAMIN\LIDOCAINE HYDROCHLORIDE\PYRIDOXINE HYDROCHLORIDE\THIAMINE HYDROCHLORIDE
     Dosage: 4 DF, UNK
     Route: 048
     Dates: start: 20151019, end: 20151023
  12. MUCODYNE [Concomitant]
     Active Substance: CARBOCYSTEINE
     Dosage: 500 MG, TID AFTER EACH MEAL
     Route: 048
  13. MUCOSTA [Concomitant]
     Active Substance: REBAMIPIDE
     Dosage: 2 DF, UNK
     Route: 048
     Dates: start: 20151019, end: 20151023
  14. THYRADIN-S [Concomitant]
     Active Substance: LEVOTHYROXINE
     Dosage: 50 UG, QD AFTER BREAKFAST
     Route: 048
  15. GASMOTIN [Concomitant]
     Active Substance: MOSAPRIDE CITRATE
     Dosage: 5 MG, BID AFTER BREAKFAST AND DINNER
     Route: 048
  16. MUCOSOLVAN [Concomitant]
     Active Substance: AMBROXOL HYDROCHLORIDE
     Dosage: 45 MG, QD AFTER DINNER
     Route: 048

REACTIONS (5)
  - Blister [Not Recovered/Not Resolved]
  - Cardiac failure congestive [Not Recovered/Not Resolved]
  - Skin ulcer [Not Recovered/Not Resolved]
  - Compression fracture [Recovering/Resolving]
  - Ascites [Not Recovered/Not Resolved]

NARRATIVE: CASE EVENT DATE: 201510
